FAERS Safety Report 7920222-2 (Version None)
Quarter: 2011Q4

REPORT INFORMATION
  Report Type: 
  Country: None (occurrence: None)
  Receive Date: 20111117
  Receipt Date: 20111114
  Transmission Date: 20120403
  Serious: Yes (Other)
  Sender: FDA-Public Use
  Company Number: BR-PFIZER INC-2011261057

PATIENT
  Age: 64 Year
  Sex: Female
  Weight: 70 kg

DRUGS (15)
  1. ATACAND [Concomitant]
     Indication: HYPERTENSION
     Dosage: UNK, ONCE DAILY
     Dates: start: 19960101
  2. LIPLESS [Concomitant]
     Indication: BLOOD TRIGLYCERIDES
  3. ESTRADIOL [Concomitant]
     Indication: HORMONE REPLACEMENT THERAPY
  4. TICLOPIDINE HYDROCHLORIDE [Concomitant]
     Indication: BLOOD PRESSURE INCREASED
  5. LEVOTHYROXINE SODIUM [Concomitant]
     Indication: THYROID NEOPLASM
     Dosage: 25 MG, 1X/DAY
     Dates: start: 20010101
  6. OMEPRAZOLE [Concomitant]
     Indication: PROPHYLAXIS
     Dosage: UNK, ONCE DAILY
  7. LIPLESS [Concomitant]
     Indication: BLOOD CHOLESTEROL
     Dosage: 100 MG, 1X/DAY
     Dates: start: 19960101
  8. BRASART [Concomitant]
     Indication: BLOOD CHOLESTEROL
     Dosage: UNK, ONCE DAILY
  9. VARENICLINE TARTRATE [Suspect]
     Indication: SMOKING CESSATION THERAPY
     Dosage: 0.5 MG, 1X/DAY
     Route: 048
     Dates: start: 20111022
  10. ESTRADIOL [Concomitant]
     Indication: THYROID NEOPLASM
     Dosage: 1 MG, 1X/DAY
     Dates: start: 19960101
  11. SIMVASTATIN [Concomitant]
     Indication: BLOOD TRIGLYCERIDES
  12. TICLOPIDINE HYDROCHLORIDE [Concomitant]
     Indication: BLOOD PRESSURE
     Dosage: 250 MG, 1X/DAY
  13. CITALOPRAM [Concomitant]
     Indication: DEPRESSION
     Dosage: 20 MG, 1X/DAY
     Dates: start: 20080101
  14. SIMVASTATIN [Concomitant]
     Indication: BLOOD CHOLESTEROL
     Dosage: UNK, ONCE DAILY
     Dates: start: 19960101
  15. FORMOTEROL FUMARATE [Concomitant]
     Indication: COUGH
     Dosage: UNK

REACTIONS (4)
  - ABDOMINAL PAIN [None]
  - DYSENTERY [None]
  - INSOMNIA [None]
  - DYSGEUSIA [None]
